FAERS Safety Report 23396192 (Version 1)
Quarter: 2024Q1

REPORT INFORMATION
  Report Type: Spontaneous
  Country: US (occurrence: US)
  Receive Date: 20240112
  Receipt Date: 20240112
  Transmission Date: 20240410
  Serious: No
  Sender: FDA-Public Use
  Company Number: US-ABBVIE-5579953

PATIENT
  Sex: Female

DRUGS (4)
  1. ORILISSA [Suspect]
     Active Substance: ELAGOLIX SODIUM
     Indication: Endometriosis
     Dosage: FORM STRENGTH: 150 MILLIGRAM
     Route: 048
     Dates: start: 20220131, end: 202203
  2. ORILISSA [Suspect]
     Active Substance: ELAGOLIX SODIUM
     Indication: Endometriosis
     Dosage: FORM STRENGTH: 200 MILLIGRAM
     Route: 048
     Dates: start: 202203
  3. ORILISSA [Suspect]
     Active Substance: ELAGOLIX SODIUM
     Indication: Endometriosis
     Dosage: FORM STRENGTH: 150 MILLIGRAM
     Route: 048
  4. VITAMIN D [Concomitant]
     Active Substance: VITAMIN D NOS
     Indication: Vitamin supplementation
     Route: 065

REACTIONS (2)
  - Hot flush [Not Recovered/Not Resolved]
  - Arthralgia [Recovering/Resolving]
